FAERS Safety Report 5212827-7 (Version None)
Quarter: 2007Q1

REPORT INFORMATION
  Report Type: 
  Country: None (occurrence: None)
  Receive Date: 20070119
  Receipt Date: 20070109
  Transmission Date: 20070707
  Serious: Yes (Other)
  Sender: FDA-Public Use
  Company Number: PHNU2006DE03749

PATIENT
  Sex: Female
  Weight: 80 kg

DRUGS (7)
  1. LEPONEX [Suspect]
     Indication: SCHIZOPHRENIA
     Dosage: 125 MG/DAY
     Route: 048
     Dates: start: 19880101, end: 20040101
  2. LEPONEX [Suspect]
     Dosage: UP TO 175 MG/DAY
     Route: 048
     Dates: start: 20040101
  3. SOLIAN [Concomitant]
     Dosage: 200 MG/DAY
     Dates: start: 20050501
  4. NICOTINE [Suspect]
  5. PIPAMPERONE [Concomitant]
     Dosage: 40 MG/DAY
     Dates: start: 20020101
  6. SPIRIVA [Concomitant]
     Dates: start: 20060601
  7. AMISULPRIDE [Concomitant]
     Dosage: 200 MG/DAY
     Dates: start: 20050501

REACTIONS (4)
  - CHRONIC OBSTRUCTIVE PULMONARY DISEASE [None]
  - DYSPNOEA EXERTIONAL [None]
  - EMPHYSEMA [None]
  - PULMONARY FIBROSIS [None]
